FAERS Safety Report 5948938-8 (Version None)
Quarter: 2008Q4

REPORT INFORMATION
  Report Type: 
  Country: None (occurrence: None)
  Receive Date: 20081021
  Receipt Date: 20080327
  Transmission Date: 20090506
  Serious: Yes (Other)
  Sender: FDA-Public Use
  Company Number: HQWYE54033MAR05

PATIENT
  Age: 59 Year
  Sex: Female

DRUGS (7)
  1. PREMARIN [Suspect]
     Indication: HORMONE REPLACEMENT THERAPY
     Dosage: ORAL
     Route: 048
     Dates: start: 19850101, end: 20030101
  2. CLIMARA [Suspect]
  3. ESTRACE [Suspect]
  4. ESTRADERM [Suspect]
  5. ESTRATEST [Suspect]
  6. ESTRATEST H.S. [Suspect]
  7. PREMPRO [Suspect]

REACTIONS (1)
  - OVARIAN CANCER METASTATIC [None]
